FAERS Safety Report 18141063 (Version 1)
Quarter: 2020Q3

REPORT INFORMATION
  Report Type: Spontaneous
  Country: US (occurrence: US)
  Receive Date: 20200812
  Receipt Date: 20200812
  Transmission Date: 20201103
  Serious: Yes (Other)
  Sender: FDA-Public Use
  Company Number: US-PFIZER INC-2020285598

PATIENT
  Age: 72 Year
  Sex: Male
  Weight: 96.16 kg

DRUGS (2)
  1. REVATIO [Suspect]
     Active Substance: SILDENAFIL CITRATE
     Dosage: 20 MG, 2X/DAY
     Route: 048
  2. REVATIO [Suspect]
     Active Substance: SILDENAFIL CITRATE
     Indication: PULMONARY HYPERTENSION
     Dosage: UNK UNK, 2X/DAY (TAKES 2 A DAY)

REACTIONS (3)
  - Off label use [Unknown]
  - Coronary artery occlusion [Recovered/Resolved]
  - Product use issue [Unknown]
